FAERS Safety Report 10305979 (Version 1)
Quarter: 2014Q3

REPORT INFORMATION
  Report Type: Spontaneous
  Country: US (occurrence: None)
  Receive Date: 20140714
  Receipt Date: 20140714
  Transmission Date: 20150326
  Serious: Yes (Hospitalization, Other)
  Sender: FDA-Public Use
  Company Number: None

PATIENT
  Age: 45 Year
  Sex: Female

DRUGS (1)
  1. SULFAMETHOXAZOLE-TMP DS [Suspect]
     Active Substance: SULFAMETHOXAZOLE\TRIMETHOPRIM
     Indication: ORAL INFECTION
     Dosage: 1 TABLET
     Route: 048
     Dates: start: 20140703, end: 20140711

REACTIONS (7)
  - Local swelling [None]
  - Nausea [None]
  - Pyrexia [None]
  - Decreased appetite [None]
  - Myalgia [None]
  - Asthenia [None]
  - Dermatitis [None]

NARRATIVE: CASE EVENT DATE: 20140703
